FAERS Safety Report 5030686-2 (Version None)
Quarter: 2006Q2

REPORT INFORMATION
  Report Type: 
  Country: None (occurrence: None)
  Receive Date: 20060615
  Receipt Date: 20060602
  Transmission Date: 20061013
  Serious: Yes (Hospitalization)
  Sender: FDA-Public Use
  Company Number: 2006066954

PATIENT
  Age: 54 Year
  Sex: Male
  Weight: 73 kg

DRUGS (14)
  1. LYRICA [Suspect]
     Indication: NEURALGIA
     Dosage: 150 MG (50 MG, 3 IN 1 D), ORAL
     Route: 048
     Dates: start: 20060314, end: 20060317
  2. VALORON N RETARD (NALOXONE, TILIDINE) [Concomitant]
  3. DANTROLENE SODIUM [Concomitant]
  4. BACLOFEN [Concomitant]
  5. DOMPERIDONE [Concomitant]
  6. LEVITRA [Concomitant]
  7. MICROKLIST (SODIUM CITRATE, SODIUM LAURYL SULPHOACETATE, SORBITOL) [Concomitant]
  8. MOVICOL (MACROGOL, POTASSIUM CHLORIDE, SODIUM BICARBONATE, SODIUM CHLO [Concomitant]
  9. NITROFURANTOIN - SLOW RELEASE ^RATIOPHARM^ (NITROFURANTOIN) [Concomitant]
  10. NOVALGIN (METAMIZOLE SODIUM) [Concomitant]
  11. OXYBUTYNIN [Concomitant]
  12. SAB SIMPLEX [Concomitant]
  13. URO-NEBACETIN (NEOMYCIN SULFATE, SULFAMETHIZOLE) [Concomitant]
  14. URSO FALK [Concomitant]

REACTIONS (1)
  - ILEUS PARALYTIC [None]
